FAERS Safety Report 19425461 (Version 2)
Quarter: 2021Q2

REPORT INFORMATION
  Report Type: Report from Study
  Country: CA (occurrence: CA)
  Receive Date: 20210617
  Receipt Date: 20210621
  Transmission Date: 20210717
  Serious: Yes (Other)
  Sender: FDA-Public Use
  Company Number: CA-BIOGEN-2021BI01020775

PATIENT
  Age: 41 Year
  Sex: Female

DRUGS (2)
  1. TYSABRI [Suspect]
     Active Substance: NATALIZUMAB
     Dosage: INFUSE OVER 1 HR
     Route: 042
  2. TYSABRI [Suspect]
     Active Substance: NATALIZUMAB
     Indication: MULTIPLE SCLEROSIS
     Dosage: INFUSE OVER 1 HR
     Route: 042
     Dates: start: 20090910

REACTIONS (6)
  - Abdominal pain lower [Recovered/Resolved]
  - Prescribed underdose [Unknown]
  - Vomiting [Unknown]
  - Cystitis [Unknown]
  - Ovarian cyst ruptured [Unknown]
  - Chills [Unknown]

NARRATIVE: CASE EVENT DATE: 20210608
